FAERS Safety Report 9022274 (Version 1)
Quarter: 2013Q1

REPORT INFORMATION
  Report Type: Spontaneous
  Country: BR (occurrence: BR)
  Receive Date: 20130118
  Receipt Date: 20130118
  Transmission Date: 20140127
  Serious: Yes (Hospitalization)
  Sender: FDA-Public Use
  Company Number: PHHY2013BR004095

PATIENT
  Sex: Female

DRUGS (1)
  1. FORASEQ [Suspect]
     Indication: LUNG DISORDER
     Dosage: MORNING AND AFTERNOON

REACTIONS (3)
  - Cardiac disorder [Recovering/Resolving]
  - Lung disorder [Recovering/Resolving]
  - Blood glucose increased [Recovering/Resolving]
